FAERS Safety Report 9221227 (Version 1)
Quarter: 2013Q2

REPORT INFORMATION
  Report Type: Spontaneous
  Country: KR (occurrence: KR)
  Receive Date: 20130410
  Receipt Date: 20130410
  Transmission Date: 20140414
  Serious: Yes (Death)
  Sender: FDA-Public Use
  Company Number: KR-009507513-1304KOR002911

PATIENT
  Age: 75 Year
  Sex: Male

DRUGS (4)
  1. TIENAM [Suspect]
     Indication: MYCOBACTERIAL INFECTION
     Dosage: UNKNOWN
  2. CLARITHROMYCIN [Suspect]
     Indication: MYCOBACTERIAL INFECTION
  3. AMIKACIN [Suspect]
     Indication: MYCOBACTERIAL INFECTION
  4. DOXYCYCLINE [Suspect]
     Indication: MYCOBACTERIAL INFECTION

REACTIONS (2)
  - Disease progression [Fatal]
  - Drug ineffective [Unknown]
